FAERS Safety Report 16862190 (Version 1)
Quarter: 2019Q3

REPORT INFORMATION
  Report Type: Spontaneous
  Country: US (occurrence: US)
  Receive Date: 20190927
  Receipt Date: 20190927
  Transmission Date: 20191005
  Serious: No
  Sender: FDA-Public Use
  Company Number: US-GLAXOSMITHKLINE-US2019171781

PATIENT
  Age: 79 Year
  Sex: Female

DRUGS (1)
  1. FLONASE ALLERGY RELIEF [Suspect]
     Active Substance: FLUTICASONE PROPIONATE
     Indication: NASAL CONGESTION
     Dosage: UNK,( 3 OR 4 YEARS AGO)

REACTIONS (3)
  - Nasal discomfort [Unknown]
  - Sinus disorder [Unknown]
  - Incorrect product administration duration [Unknown]
